FAERS Safety Report 23695469 (Version 1)
Quarter: 2024Q2

REPORT INFORMATION
  Report Type: Spontaneous
  Country: US (occurrence: US)
  Receive Date: 20240402
  Receipt Date: 20240402
  Transmission Date: 20240716
  Serious: No
  Sender: FDA-Public Use
  Company Number: US-BRISTOL-MYERS SQUIBB COMPANY-2024-050195

PATIENT
  Age: 15 Year
  Sex: Male

DRUGS (1)
  1. ORENCIA [Suspect]
     Active Substance: ABATACEPT
     Indication: Eosinophilic fasciitis
     Route: 042
     Dates: start: 202304

REACTIONS (2)
  - Headache [Unknown]
  - Off label use [Unknown]
